FAERS Safety Report 5330209-4 (Version None)
Quarter: 2007Q2

REPORT INFORMATION
  Report Type: 
  Country: None (occurrence: None)
  Receive Date: 20070521
  Receipt Date: 20070507
  Transmission Date: 20071010
  Serious: Yes (Death, Other)
  Sender: FDA-Public Use
  Company Number: US-ELI_LILLY_AND_COMPANY-US200705001833

PATIENT
  Age: 25 Year
  Sex: Male

DRUGS (4)
  1. CYMBALTA [Suspect]
     Indication: BIPOLAR II DISORDER
     Dosage: 30 MG, UNK
  2. LAMICTAL [Concomitant]
     Dosage: 200 MG, UNK
  3. AMBIEN [Concomitant]
     Dosage: 10 MG, UNK
  4. XANAX [Concomitant]

REACTIONS (1)
  - ARRHYTHMIA [None]
